FAERS Safety Report 7330879-5 (Version None)
Quarter: 2011Q1

REPORT INFORMATION
  Report Type: 
  Country: None (occurrence: None)
  Receive Date: 20110304
  Receipt Date: 20110221
  Transmission Date: 20110831
  Serious: Yes (Other)
  Sender: FDA-Public Use
  Company Number: JP-JNJFOC-20110201654

PATIENT
  Sex: Male

DRUGS (6)
  1. MUCOSOLVAN [Concomitant]
     Route: 048
  2. CONIEL [Concomitant]
     Route: 048
  3. CRAVIT [Suspect]
     Indication: PNEUMONIA
     Route: 048
  4. CRAVIT [Suspect]
     Route: 048
  5. CRAVIT [Suspect]
     Route: 048
  6. CRAVIT [Suspect]
     Indication: BRONCHITIS
     Route: 048

REACTIONS (4)
  - BALANITIS [None]
  - DRUG ERUPTION [None]
  - INAPPROPRIATE SCHEDULE OF DRUG ADMINISTRATION [None]
  - STOMATITIS [None]
